FAERS Safety Report 4318825-X (Version None)
Quarter: 2004Q1

REPORT INFORMATION
  Report Type: 
  Country: None (occurrence: None)
  Receive Date: 20040318
  Receipt Date: 20040122
  Transmission Date: 20041129
  Serious: Yes (Other)
  Sender: FDA-Public Use
  Company Number: WAES 0401DEU00118

PATIENT
  Sex: Male

DRUGS (3)
  1. ALCOHOL [Suspect]
     Route: 048
  2. ZETIA [Suspect]
     Route: 048
  3. STATIN (UNSPECIFIED) [Concomitant]

REACTIONS (1)
  - ALCOHOLIC LIVER DISEASE [None]
